FAERS Safety Report 5622090-0 (Version None)
Quarter: 2008Q1

REPORT INFORMATION
  Report Type: 
  Country: None (occurrence: None)
  Receive Date: 20080211
  Receipt Date: 20080207
  Transmission Date: 20080703
  Serious: Yes (Hospitalization)
  Sender: FDA-Public Use
  Company Number: DE-BRISTOL-MYERS SQUIBB COMPANY-14069918

PATIENT
  Age: 66 Year
  Sex: Female

DRUGS (5)
  1. CETUXIMAB [Suspect]
     Indication: COLORECTAL CANCER METASTATIC
     Dosage: MOST RECENT INFUSION ON 31-JAN-2008.
     Route: 042
     Dates: start: 20080110
  2. IRINOTECAN [Suspect]
     Indication: COLORECTAL CANCER METASTATIC
     Dosage: MOST RECENT INFUSION ON 24-JAN-2008.
     Route: 042
     Dates: start: 20080110
  3. FLUOROURACIL [Suspect]
     Indication: COLORECTAL CANCER METASTATIC
     Dosage: 4416MG IVB 1 IN 2 WEEKS TAKEN ON 10-JAN-2008.MOST RECENT INFUSION ON 24-JAN-2008.
     Route: 040
     Dates: start: 20080110
  4. FOLINIC ACID [Suspect]
     Indication: COLORECTAL CANCER METASTATIC
     Dosage: MOST RECENT INFUSION ON 24-JAN-2008.
     Route: 042
     Dates: start: 20080110
  5. OMEPRAZOLE [Concomitant]
     Route: 048

REACTIONS (1)
  - THROMBOSIS [None]
